FAERS Safety Report 19389163 (Version 3)
Quarter: 2021Q2

REPORT INFORMATION
  Report Type: Spontaneous
  Country: ME (occurrence: ME)
  Receive Date: 20210607
  Receipt Date: 20210621
  Transmission Date: 20210717
  Serious: Yes (Other)
  Sender: FDA-Public Use
  Company Number: ME-009507513-2106MNE000975

PATIENT
  Age: 56 Year
  Sex: Male

DRUGS (1)
  1. KEYTRUDA [Suspect]
     Active Substance: PEMBROLIZUMAB
     Indication: NON-SMALL CELL LUNG CANCER METASTATIC
     Dosage: UNK, CYCLICAL
     Dates: start: 20191226

REACTIONS (4)
  - Pleural effusion [Unknown]
  - Tumour pseudoprogression [Recovered/Resolved]
  - Swelling [Unknown]
  - Lymphadenopathy [Recovered/Resolved]
